FAERS Safety Report 9614343 (Version 1)
Quarter: 2013Q4

REPORT INFORMATION
  Report Type: Other
  Country: GB (occurrence: GB)
  Receive Date: 20131011
  Receipt Date: 20131011
  Transmission Date: 20140711
  Serious: Yes (Disabling, Other)
  Sender: FDA-Public Use
  Company Number: GB-LUPIN PHARMACEUTICALS INC.-E2B_00001329

PATIENT
  Age: 17 Year
  Sex: Female
  Weight: 51.5 kg

DRUGS (1)
  1. SERTRALINE HYDROCHLORIDE [Suspect]
     Indication: DEPRESSION
     Route: 048
     Dates: start: 20130828, end: 20130903

REACTIONS (4)
  - Ocular hyperaemia [Recovering/Resolving]
  - Chromaturia [Recovering/Resolving]
  - Arthralgia [Recovering/Resolving]
  - Hypersensitivity [Recovering/Resolving]
